FAERS Safety Report 6528641-6 (Version None)
Quarter: 2010Q1

REPORT INFORMATION
  Report Type: 
  Country: None (occurrence: None)
  Receive Date: 20100105
  Receipt Date: 20100105
  Transmission Date: 20100710
  Serious: Yes (Life-Threatening, Hospitalization, Disabling, Other)
  Sender: FDA-Public Use
  Company Number: None

PATIENT
  Age: 54 Year
  Sex: Male
  Weight: 96.1626 kg

DRUGS (3)
  1. TOPROL-XL [Suspect]
     Indication: CARDIAC DISORDER
     Dates: start: 20020201, end: 20091231
  2. AMLODIPINE [Suspect]
     Indication: CARDIAC DISORDER
     Dates: start: 20020201, end: 20091231
  3. NORVASC [Concomitant]

REACTIONS (5)
  - ANURIA [None]
  - CHEST PAIN [None]
  - FATIGUE [None]
  - FLUID RETENTION [None]
  - PALPITATIONS [None]
